FAERS Safety Report 4355240-7 (Version None)
Quarter: 2004Q2

REPORT INFORMATION
  Report Type: 
  Country: None (occurrence: None)
  Receive Date: 20040504
  Receipt Date: 20040419
  Transmission Date: 20050107
  Serious: Yes (Death)
  Sender: FDA-Public Use
  Company Number: B0330624A

PATIENT

DRUGS (3)
  1. EPIVIR [Suspect]
     Indication: HIV INFECTION
  2. TENOFOVIR (FORMULATION UNKNOWN) (TENOFOVIR) [Suspect]
     Indication: HIV INFECTION
  3. EFAVIRENZ (FORMULATION UNKNOWN) (EFAVIRENZ) [Suspect]
     Indication: HIV INFECTION

REACTIONS (6)
  - HEPATOTOXICITY [None]
  - LACTIC ACIDOSIS [None]
  - LIVER FUNCTION TEST ABNORMAL [None]
  - MITOCHONDRIAL TOXICITY [None]
  - PANCREATITIS [None]
  - RENAL FAILURE [None]
